FAERS Safety Report 8785811 (Version 1)
Quarter: 2012Q4

REPORT INFORMATION
  Report Type: 
  Country: SE (occurrence: SE)
  Receive Date: 20120914
  Receipt Date: 20120914
  Transmission Date: 20130627
  Serious: Yes (Other)
  Sender: FDA-Public Use
  Company Number: PHHY2012SE079663

PATIENT
  Sex: Female

DRUGS (1)
  1. TEGRETOL [Suspect]
     Indication: EPILEPSY

REACTIONS (4)
  - Petit mal epilepsy [Unknown]
  - Red blood cell count increased [Unknown]
  - Hypotonia [Unknown]
  - Fatigue [Unknown]
